FAERS Safety Report 4803401-2 (Version None)
Quarter: 2005Q4

REPORT INFORMATION
  Report Type: 
  Country: None (occurrence: None)
  Receive Date: 20051019
  Receipt Date: 20051012
  Transmission Date: 20060501
  Serious: Yes (Disabling)
  Sender: FDA-Public Use
  Company Number: JP-JNJFOC-20051002542

PATIENT
  Age: 13 Year

DRUGS (6)
  1. TAVANIC [Suspect]
     Indication: CYSTIC FIBROSIS
     Route: 048
     Dates: start: 20050906, end: 20050915
  2. TAVANIC [Suspect]
     Indication: LOWER RESPIRATORY TRACT INFECTION
     Route: 048
     Dates: start: 20050906, end: 20050915
  3. SODIUM FUSIDATE [Concomitant]
     Route: 048
  4. CREON [Concomitant]
     Route: 065
  5. PULMOZYME [Concomitant]
     Route: 065
  6. PULMICORT [Concomitant]
     Route: 065

REACTIONS (2)
  - ARTHROPATHY [None]
  - JOINT EFFUSION [None]
